FAERS Safety Report 5915475-6 (Version None)
Quarter: 2008Q4

REPORT INFORMATION
  Report Type: 
  Country: None (occurrence: None)
  Receive Date: 20081010
  Receipt Date: 20081001
  Transmission Date: 20090506
  Serious: Yes (Hospitalization, Other)
  Sender: FDA-Public Use
  Company Number: US-PFIZER INC-2007069704

PATIENT
  Sex: Female
  Weight: 81.6 kg

DRUGS (6)
  1. LYRICA [Suspect]
     Indication: NEUROPATHY PERIPHERAL
     Dates: end: 20070101
  2. CELEBREX [Suspect]
     Indication: PAIN
     Dates: start: 20080901, end: 20081001
  3. PLAVIX [Suspect]
     Dates: end: 20070101
  4. ACETYLSALICYLIC ACID SRT [Concomitant]
  5. ALL OTHER THERAPEUTIC PRODUCTS [Concomitant]
  6. ALL OTHER THERAPEUTIC PRODUCTS [Concomitant]

REACTIONS (15)
  - ABDOMINAL PAIN UPPER [None]
  - BLOOD CHOLESTEROL INCREASED [None]
  - BLOOD IRON DECREASED [None]
  - CEREBROVASCULAR ACCIDENT [None]
  - GASTROINTESTINAL ULCER HAEMORRHAGE [None]
  - HYPERTENSION [None]
  - MEMORY IMPAIRMENT [None]
  - MYOCARDIAL INFARCTION [None]
  - NAUSEA [None]
  - OEDEMA PERIPHERAL [None]
  - RENAL FAILURE [None]
  - SKIN EXFOLIATION [None]
  - SKIN WARM [None]
  - STENT PLACEMENT [None]
  - SUICIDAL IDEATION [None]
